FAERS Safety Report 16115311 (Version 1)
Quarter: 2019Q1

REPORT INFORMATION
  Report Type: Spontaneous
  Country: US (occurrence: US)
  Receive Date: 20190325
  Receipt Date: 20190325
  Transmission Date: 20190418
  Serious: No
  Sender: FDA-Public Use
  Company Number: US-PFIZER INC-2019119531

PATIENT
  Age: 61 Year
  Sex: Male
  Weight: 95.25 kg

DRUGS (1)
  1. CAVERJECT [Suspect]
     Active Substance: ALPROSTADIL
     Indication: ERECTILE DYSFUNCTION
     Dosage: UNK, (ONCE A DAY AND NOT EVERY DAY, IT IS LIKE A HALF OF A 1 ML SYRINGE SOMETHING LIKE 0.5 ML)
     Route: 017

REACTIONS (5)
  - Drug ineffective [Unknown]
  - Haemoglobin increased [Unknown]
  - Blood creatine increased [Unknown]
  - White blood cell count increased [Unknown]
  - Red blood cell count increased [Unknown]

NARRATIVE: CASE EVENT DATE: 20190309
